FAERS Safety Report 24410903 (Version 1)
Quarter: 2024Q4

REPORT INFORMATION
  Report Type: Spontaneous
  Country: US (occurrence: US)
  Receive Date: 20241008
  Receipt Date: 20241008
  Transmission Date: 20250115
  Serious: Yes (Life-Threatening, Hospitalization)
  Sender: MYLAN
  Company Number: US-MYLANLABS-2024M1088692

PATIENT
  Age: 34 Year
  Sex: Male

DRUGS (8)
  1. POSACONAZOLE [Suspect]
     Active Substance: POSACONAZOLE
     Indication: Pulmonary mucormycosis
     Dosage: UNK
     Route: 065
  2. AMPHOTERICIN B [Suspect]
     Active Substance: AMPHOTERICIN B
     Indication: Pulmonary mucormycosis
     Dosage: UNK
     Route: 065
  3. AMPHOTERICIN B [Suspect]
     Active Substance: AMPHOTERICIN B
     Indication: Antifungal treatment
  4. PREDNISONE [Concomitant]
     Active Substance: PREDNISONE
     Indication: Lung abscess
     Dosage: UNK
     Route: 065
  5. PREDNISONE [Concomitant]
     Active Substance: PREDNISONE
     Dosage: UNK, INCREASED DOSE
     Route: 065
  6. COTRIMOXAZOLE [Concomitant]
     Active Substance: SULFAMETHOXAZOLE\TRIMETHOPRIM
     Indication: Lung abscess
     Dosage: UNK
     Route: 065
  7. LINEZOLID [Concomitant]
     Active Substance: LINEZOLID
     Indication: Lung abscess
     Dosage: UNK
     Route: 065
  8. PIPERACILLIN AND TAZOBACTAM [Concomitant]
     Active Substance: PIPERACILLIN SODIUM\TAZOBACTAM SODIUM
     Indication: Lung abscess
     Dosage: UNK
     Route: 065

REACTIONS (1)
  - Drug ineffective [Unknown]
